FAERS Safety Report 16334128 (Version 2)
Quarter: 2019Q2

REPORT INFORMATION
  Report Type: Spontaneous
  Country: FR (occurrence: FR)
  Receive Date: 20190520
  Receipt Date: 20190621
  Transmission Date: 20190711
  Serious: Yes (Hospitalization)
  Sender: FDA-Public Use
  Company Number: FR-MYLANLABS-2019M1047869

PATIENT
  Age: 27 Year
  Sex: Female

DRUGS (7)
  1. EVEROLIMUS MYLAN [Suspect]
     Active Substance: EVEROLIMUS
     Indication: TUBEROUS SCLEROSIS COMPLEX
     Dosage: 10 MILLIGRAM
  2. EVEROLIMUS MYLAN [Suspect]
     Active Substance: EVEROLIMUS
     Dosage: 7.5 MILLIGRAM
  3. HALDOL [Concomitant]
     Active Substance: HALOPERIDOL
     Indication: MENTAL DISORDER
  4. EVEROLIMUS MYLAN [Suspect]
     Active Substance: EVEROLIMUS
     Dosage: 10 MILLIGRAM
  5. TERCIAN                            /00759301/ [Concomitant]
     Active Substance: CYAMEMAZINE
     Dosage: UNK
  6. EPITOMAX [Concomitant]
     Active Substance: TOPIRAMATE
     Dosage: UNK
  7. HALDOL [Concomitant]
     Active Substance: HALOPERIDOL
     Indication: EPILEPSY
     Dosage: UNK

REACTIONS (4)
  - Skin plaque [Unknown]
  - Erythema [Unknown]
  - Hallucination, auditory [Unknown]
  - Off label use [Unknown]
